FAERS Safety Report 7008430-9 (Version None)
Quarter: 2010Q3

REPORT INFORMATION
  Report Type: 
  Country: None (occurrence: None)
  Receive Date: 20100721
  Receipt Date: 20100415
  Transmission Date: 20110219
  Serious: No
  Sender: FDA-Public Use
  Company Number: LMI-2010-00294

PATIENT
  Age: 49 Year
  Sex: Female
  Weight: 90.7194 kg

DRUGS (2)
  1. ABLAVAR [Suspect]
     Indication: MUSCULAR WEAKNESS
     Dosage: 10 ML VIA POWER INJECTOR, INTRAVENOUS
     Route: 042
     Dates: start: 20100415, end: 20100415
  2. ABLAVAR [Suspect]
     Indication: NUCLEAR MAGNETIC RESONANCE IMAGING
     Dosage: 10 ML VIA POWER INJECTOR, INTRAVENOUS
     Route: 042
     Dates: start: 20100415, end: 20100415

REACTIONS (2)
  - NAUSEA [None]
  - THROAT IRRITATION [None]
